FAERS Safety Report 5287441-8 (Version None)
Quarter: 2007Q1

REPORT INFORMATION
  Report Type: 
  Country: None (occurrence: None)
  Receive Date: 20070116
  Receipt Date: 20060925
  Transmission Date: 20070707
  Serious: No
  Sender: FDA-Public Use
  Company Number: 2006SP003409

PATIENT
  Age: 70 Year
  Sex: Male
  Weight: 79.8331 kg

DRUGS (5)
  1. LUNESTA [Suspect]
     Indication: INSOMNIA
     Dosage: 3 MG HS ORAL
     Route: 048
     Dates: start: 20060701
  2. PLAVIX [Concomitant]
  3. AVANDAMET [Concomitant]
  4. ATORVASTATIN CALCIUM [Concomitant]
  5. ENALAPRIL [Concomitant]

REACTIONS (1)
  - DIZZINESS [None]
